FAERS Safety Report 8936924 (Version 1)
Quarter: 2012Q4

REPORT INFORMATION
  Report Type: 
  Country: DE (occurrence: DE)
  Receive Date: 20121130
  Receipt Date: 20121130
  Transmission Date: 20130627
  Serious: Yes (Death, Other)
  Sender: FDA-Public Use
  Company Number: GXKR2012DE003637

PATIENT
  Sex: Female
  Weight: .54 kg

DRUGS (2)
  1. AMITRIPTYLINE [Suspect]
     Dosage: Maternal dose: 50 mg/day
     Route: 064
  2. CELESTAN [Concomitant]
     Dosage: UNK UKN, UNK
     Route: 064

REACTIONS (3)
  - Foetal death [Fatal]
  - Foetal growth restriction [Not Recovered/Not Resolved]
  - Foetal exposure during pregnancy [Unknown]
